FAERS Safety Report 6577783-8 (Version None)
Quarter: 2010Q1

REPORT INFORMATION
  Report Type: 
  Country: None (occurrence: None)
  Receive Date: 20100211
  Receipt Date: 20100201
  Transmission Date: 20100710
  Serious: Yes (Disabling)
  Sender: FDA-Public Use
  Company Number: JP-BAYER-200915206BYL

PATIENT
  Age: 71 Year
  Sex: Male

DRUGS (9)
  1. NEXAVAR [Suspect]
     Indication: RENAL CELL CARCINOMA
     Dosage: TOTAL DAILY DOSE: 800 MG  UNIT DOSE: 200 MG
     Route: 048
     Dates: start: 20090322, end: 20090504
  2. NEXAVAR [Suspect]
     Dosage: TOTAL DAILY DOSE: 800 MG  UNIT DOSE: 200 MG
     Route: 048
     Dates: start: 20090515
  3. LIPITOR [Concomitant]
     Dosage: SINCE BEFORE NEXAVAR ADMINISTRATION
     Route: 048
  4. GASTER [Concomitant]
     Dosage: SINCE BEFORE NEXAVAR ADMINISTRATION
     Route: 048
  5. MARZULENE [Concomitant]
     Dosage: SINCE BEFORE NEXAVAR ADMINISTRATION
     Route: 048
  6. BERIZYM [Concomitant]
     Dosage: SINCE BEFORE NEXAVAR ADMINISTRATION
     Route: 048
  7. BIOFERMIN [Concomitant]
     Dosage: SINCE BEFORE NEXAVAR ADMINISTRATION
     Route: 048
  8. LOPEMIN [Concomitant]
     Route: 048
     Dates: start: 20090508
  9. ALESION [Concomitant]
     Dosage: TOTAL DAILY DOSE: 20 MG
     Route: 048

REACTIONS (6)
  - BLOOD BILIRUBIN INCREASED [None]
  - BLOOD THYROID STIMULATING HORMONE INCREASED [None]
  - DIARRHOEA [None]
  - PALMAR-PLANTAR ERYTHRODYSAESTHESIA SYNDROME [None]
  - PERIANAL ERYTHEMA [None]
  - THYROIDITIS [None]
